FAERS Safety Report 22537812 (Version 2)
Quarter: 2023Q2

REPORT INFORMATION
  Report Type: Spontaneous
  Country: CN (occurrence: CN)
  Receive Date: 20230608
  Receipt Date: 20230619
  Transmission Date: 20230721
  Serious: Yes (Hospitalization)
  Sender: FDA-Public Use
  Company Number: CN-TEVA-2023-CN-2894151

PATIENT
  Age: 17 Year
  Sex: Female

DRUGS (14)
  1. CYCLOSPORINE [Suspect]
     Active Substance: CYCLOSPORINE
     Indication: Immunosuppressant drug therapy
     Route: 065
  2. LEVOFLOXACIN [Suspect]
     Active Substance: LEVOFLOXACIN
     Indication: Pulmonary tuberculosis
     Dosage: 10 MG/KG DAILY; ONCE A DAY
     Route: 065
     Dates: start: 202007, end: 202104
  3. CYCLOPHOSPHAMIDE [Suspect]
     Active Substance: CYCLOPHOSPHAMIDE
     Indication: Immunosuppressant drug therapy
     Route: 065
  4. MYCOPHENOLATE MOFETIL [Suspect]
     Active Substance: MYCOPHENOLATE MOFETIL
     Indication: Immunosuppressant drug therapy
     Route: 065
  5. BUSULFAN [Suspect]
     Active Substance: BUSULFAN
     Indication: Immunosuppressant drug therapy
     Route: 065
  6. FLUDARABINE [Suspect]
     Active Substance: FLUDARABINE PHOSPHATE
     Indication: Immunosuppressant drug therapy
     Route: 065
  7. THIOTEPA [Suspect]
     Active Substance: THIOTEPA
     Indication: Immunosuppressant drug therapy
     Route: 065
  8. POSACONAZOLE [Suspect]
     Active Substance: POSACONAZOLE
     Indication: Antifungal prophylaxis
     Dosage: 600 MILLIGRAM DAILY; 200 MG EVERY 8 HRS
     Route: 048
  9. METHYLPREDNISOLONE [Suspect]
     Active Substance: METHYLPREDNISOLONE
     Indication: Immunosuppressant drug therapy
     Dosage: 1 MG/KG DAILY; ONCE A DAY
     Route: 042
  10. IMIPENEM [Suspect]
     Active Substance: IMIPENEM
     Indication: Bacterial infection
     Dosage: 60 MG/KG DAILY; 15 MG/KG EVERY 6 HRS
     Route: 065
  11. GANCICLOVIR [Suspect]
     Active Substance: GANCICLOVIR
     Indication: Antiviral treatment
     Dosage: 10 MG/KG DAILY; 5 MG/KG EVERY 12 HRS
     Route: 065
  12. ISONIAZID [Concomitant]
     Active Substance: ISONIAZID
     Indication: Antibiotic prophylaxis
     Dosage: 10 MG/KG DAILY; ONCE A DAY
     Route: 048
     Dates: start: 202007, end: 202104
  13. RIFAMPIN [Concomitant]
     Active Substance: RIFAMPIN
     Indication: Antibiotic prophylaxis
     Dosage: 10 MG/KG DAILY; ONCE A DAY
     Route: 048
     Dates: start: 202007, end: 202104
  14. RIFAPENTINE [Concomitant]
     Active Substance: RIFAPENTINE
     Indication: Antibiotic prophylaxis
     Dosage: 600 MG PER WEEK
     Route: 065

REACTIONS (2)
  - Pneumonia fungal [Recovered/Resolved]
  - Drug ineffective [Unknown]
